FAERS Safety Report 7741239-7 (Version None)
Quarter: 2011Q3

REPORT INFORMATION
  Report Type: 
  Country: None (occurrence: None)
  Receive Date: 20110909
  Receipt Date: 20110831
  Transmission Date: 20111222
  Serious: Yes (Other)
  Sender: FDA-Public Use
  Company Number: CN-ASTRAZENECA-2011SE52103

PATIENT
  Sex: Male

DRUGS (5)
  1. SYMBICORT [Suspect]
     Indication: ASTHMA
     Dosage: 2 INHALATIONS BID
     Route: 055
  2. SPIRIVA [Concomitant]
  3. VENTOLIN HFA [Concomitant]
  4. SYMBICORT [Suspect]
     Indication: BRONCHIECTASIS
     Dosage: 2 INHALATIONS BID
     Route: 055
  5. SYMBICORT [Suspect]
     Indication: CHRONIC OBSTRUCTIVE PULMONARY DISEASE
     Dosage: 2 INHALATIONS BID
     Route: 055

REACTIONS (1)
  - LARYNGOSPASM [None]
